FAERS Safety Report 23706944 (Version 1)
Quarter: 2024Q2

REPORT INFORMATION
  Report Type: Report from Study
  Country: US (occurrence: US)
  Receive Date: 20240404
  Receipt Date: 20240404
  Transmission Date: 20240716
  Serious: Yes (Other)
  Sender: FDA-Public Use
  Company Number: US-drreddys-CLI/USA/22/0150884

PATIENT
  Age: 20 Year
  Sex: Female

DRUGS (1)
  1. ZENATANE [Suspect]
     Active Substance: ISOTRETINOIN
     Indication: Acne
     Dosage: RMA ISSUE DATE: 01 DECEMBER 2021 02:41:09 PM, 04 MARCH 2022 02:10:03 PM
     Dates: start: 20220304, end: 20220310

REACTIONS (12)
  - Anxiety [Unknown]
  - Mood altered [Unknown]
  - Exposure during pregnancy [Recovered/Resolved]
  - Subchorionic haemorrhage [Unknown]
  - Staphylococcal infection [Unknown]
  - Urinary tract infection [Unknown]
  - Herpes simplex [Unknown]
  - Abdominal pain lower [Unknown]
  - Rhesus incompatibility [Recovered/Resolved]
  - Treatment noncompliance [Unknown]
  - Normal newborn [Recovered/Resolved]
  - Product dose omission issue [Unknown]

NARRATIVE: CASE EVENT DATE: 20220310
